FAERS Safety Report 13876825 (Version 1)
Quarter: 2017Q3

REPORT INFORMATION
  Report Type: Spontaneous
  Country: US (occurrence: None)
  Receive Date: 20170814
  Receipt Date: 20170814
  Transmission Date: 20171127
  Serious: No
  Sender: FDA-Public Use
  Company Number: None

PATIENT
  Age: 47 Year
  Sex: Male

DRUGS (1)
  1. IBRANCE [Suspect]
     Active Substance: PALBOCICLIB
     Indication: BREAST CANCER
     Dosage: 100MG DAILY FOR 21 DAYS ON. 7 DAYS OFF PO
     Route: 048
     Dates: start: 20170301

REACTIONS (1)
  - Sensory disturbance [None]

NARRATIVE: CASE EVENT DATE: 20170627
